FAERS Safety Report 10720918 (Version 1)
Quarter: 2015Q1

REPORT INFORMATION
  Report Type: Spontaneous
  Country: US (occurrence: US)
  Receive Date: 20150119
  Receipt Date: 20150119
  Transmission Date: 20150721
  Serious: No
  Sender: FDA-Public Use
  Company Number: US-UNITED THERAPEUTICS-UNT-2014-006320

PATIENT
  Age: 33 Year
  Sex: Female

DRUGS (4)
  1. TYVASO [Suspect]
     Active Substance: TREPROSTINIL
     Indication: PULMONARY ARTERIAL HYPERTENSION
     Dosage: 30 MICROGRAMS, Q2-3H
     Dates: start: 20130711
  2. ORENITRAM [Suspect]
     Active Substance: TREPROSTINIL
     Dosage: 7.375 MG. TID
     Route: 048
     Dates: start: 20140702
  3. ORENITRAM [Suspect]
     Active Substance: TREPROSTINIL
     Indication: PULMONARY ARTERIAL HYPERTENSION
     Dosage: 6.875 MG, TID
     Route: 048
     Dates: start: 20140702
  4. ADEMPAS [Suspect]
     Active Substance: RIOCIGUAT
     Indication: PRODUCT USED FOR UNKNOWN INDICATION
     Dosage: 0.5 MG, TID
     Route: 065
     Dates: start: 20141219

REACTIONS (5)
  - Pain [Unknown]
  - Headache [Unknown]
  - Back pain [Unknown]
  - Flushing [Unknown]
  - Heart rate increased [Unknown]

NARRATIVE: CASE EVENT DATE: 20140817
